FAERS Safety Report 4330682-4 (Version None)
Quarter: 2004Q1

REPORT INFORMATION
  Report Type: 
  Country: None (occurrence: None)
  Receive Date: 20040329
  Receipt Date: 20040312
  Transmission Date: 20041129
  Serious: Yes (Disabling)
  Sender: FDA-Public Use
  Company Number: 2004US000326

PATIENT
  Age: 53 Year
  Sex: Female

DRUGS (3)
  1. ADENOSCAN [Suspect]
     Indication: SCAN MYOCARDIAL PERFUSION
  2. COMBIVENT [Suspect]
     Dates: start: 20030201, end: 20040201
  3. DYE IN STRESS TEST (DYE IN STRESS TEST) [Suspect]

REACTIONS (3)
  - GASTROOESOPHAGEAL REFLUX DISEASE [None]
  - HYPERSENSITIVITY [None]
  - OEDEMA PERIPHERAL [None]
